FAERS Safety Report 23540172 (Version 1)
Quarter: 2024Q1

REPORT INFORMATION
  Report Type: Spontaneous
  Country: US (occurrence: US)
  Receive Date: 20240219
  Receipt Date: 20240219
  Transmission Date: 20240410
  Serious: Yes (Other)
  Sender: FDA-Public Use
  Company Number: US-BAYER-2024A025546

PATIENT

DRUGS (1)
  1. ACETAMINOPHEN AND DEXTROMETHORPHAN HYDROBROMIDE [Suspect]
     Active Substance: ACETAMINOPHEN\DEXTROMETHORPHAN HYDROBROMIDE
     Dosage: UNK
     Route: 048

REACTIONS (2)
  - Open angle glaucoma [None]
  - Hypertension [None]
